FAERS Safety Report 24447993 (Version 1)
Quarter: 2024Q4

REPORT INFORMATION
  Report Type: Spontaneous
  Country: CN (occurrence: CN)
  Receive Date: 20241016
  Receipt Date: 20241016
  Transmission Date: 20250114
  Serious: Yes (Hospitalization, Other)
  Sender: LEADING PHARMA
  Company Number: CN-LEADINGPHARMA-CN-2024LEALIT00453

PATIENT
  Age: 46 Year
  Sex: Female

DRUGS (3)
  1. FOLIC ACID [Suspect]
     Active Substance: FOLIC ACID
     Indication: Anaemia folate deficiency
     Route: 048
  2. FOLIC ACID [Suspect]
     Active Substance: FOLIC ACID
     Route: 065
  3. LORATADINE [Concomitant]
     Active Substance: LORATADINE
     Indication: Product used for unknown indication
     Route: 065

REACTIONS (1)
  - Type I hypersensitivity [Recovered/Resolved]
